FAERS Safety Report 19977527 (Version 1)
Quarter: 2021Q4

REPORT INFORMATION
  Report Type: Spontaneous
  Country: US (occurrence: US)
  Receive Date: 20211020
  Receipt Date: 20211020
  Transmission Date: 20220303
  Serious: No
  Sender: FDA-Public Use
  Company Number: US-ALLERGAN-2115632US

PATIENT
  Age: 78 Year
  Sex: Female

DRUGS (2)
  1. LINZESS [Suspect]
     Active Substance: LINACLOTIDE
     Indication: Irritable bowel syndrome
     Dosage: 72 ?G, QD
     Route: 048
  2. IRON [Concomitant]
     Active Substance: IRON
     Indication: Anaemia
     Route: 042

REACTIONS (2)
  - Polyuria [Recovered/Resolved]
  - Dehydration [Unknown]
